FAERS Safety Report 8799874 (Version 2)
Quarter: 2013Q4

REPORT INFORMATION
  Report Type: Spontaneous
  Country: US (occurrence: US)
  Receive Date: 20120919
  Receipt Date: 20131105
  Transmission Date: 20140711
  Serious: Yes (Other)
  Sender: FDA-Public Use
  Company Number: US-MERCK-1209USA005771

PATIENT
  Sex: Female

DRUGS (1)
  1. SAPHRIS [Suspect]

REACTIONS (6)
  - Dysphagia [Unknown]
  - Throat tightness [Unknown]
  - Anxiety [Unknown]
  - Toothache [Unknown]
  - Dyspnoea [Unknown]
  - Somnolence [Unknown]
